FAERS Safety Report 10142867 (Version 2)
Quarter: 2014Q2

REPORT INFORMATION
  Report Type: Spontaneous
  Country: MX (occurrence: MX)
  Receive Date: 20140430
  Receipt Date: 20140430
  Transmission Date: 20141212
  Serious: Yes (Hospitalization, Other)
  Sender: FDA-Public Use
  Company Number: MX-ELI_LILLY_AND_COMPANY-MX201311001204

PATIENT
  Age: 7 Year
  Sex: Female

DRUGS (5)
  1. INSULIN LISPRO [Suspect]
     Indication: TYPE 1 DIABETES MELLITUS
     Dosage: 7 IU, BID
     Route: 058
     Dates: start: 201105
  2. INSULIN LISPRO [Suspect]
     Dosage: 10 IU, EACH MORNING
     Route: 058
  3. INSULIN LISPRO [Suspect]
     Dosage: 7 IU, EACH EVENING
     Route: 058
  4. INSULIN GLARGINE [Concomitant]
     Dosage: UNK, PRN
  5. LEVOTHYROXINE [Concomitant]
     Indication: HYPERTHYROIDISM
     Dosage: 1.5 DF, QD
     Route: 065

REACTIONS (14)
  - Hypoglycaemic seizure [Recovered/Resolved with Sequelae]
  - Blood potassium decreased [Unknown]
  - Stress [Unknown]
  - Dyskinesia [Not Recovered/Not Resolved]
  - Infection [Not Recovered/Not Resolved]
  - Blood glucose fluctuation [Unknown]
  - Abdominal pain upper [Unknown]
  - Oropharyngeal pain [Unknown]
  - Urinary tract infection [Unknown]
  - Myopia [Unknown]
  - Astigmatism [Unknown]
  - Photophobia [Unknown]
  - Dry eye [Unknown]
  - Eye discharge [Unknown]
